FAERS Safety Report 5257145-6 (Version None)
Quarter: 2007Q1

REPORT INFORMATION
  Report Type: 
  Country: None (occurrence: None)
  Receive Date: 20070305
  Receipt Date: 20070215
  Transmission Date: 20070707
  Serious: Yes (Death)
  Sender: FDA-Public Use
  Company Number: 2007BM000018

PATIENT
  Age: 67 Year
  Sex: Female

DRUGS (3)
  1. CYCLOPHOSPHAMIDE [Suspect]
     Indication: DERMATOMYOSITIS
     Dosage: 50 MG; QD
  2. PREDNISOLONE [Suspect]
     Indication: DERMATOMYOSITIS
     Dosage: SEE IMAGE
  3. ORAPRED [Suspect]

REACTIONS (7)
  - BLOOD LACTATE DEHYDROGENASE INCREASED [None]
  - CELL MARKER INCREASED [None]
  - CONDITION AGGRAVATED [None]
  - DERMATOMYOSITIS [None]
  - INFECTION IN AN IMMUNOCOMPROMISED HOST [None]
  - INTERSTITIAL LUNG DISEASE [None]
  - PNEUMONIA CYTOMEGALOVIRAL [None]
